FAERS Safety Report 13030650 (Version 2)
Quarter: 2017Q1

REPORT INFORMATION
  Report Type: Spontaneous
  Country: US (occurrence: US)
  Receive Date: 20161215
  Receipt Date: 20170105
  Transmission Date: 20170428
  Serious: Yes (Other)
  Sender: FDA-Public Use
  Company Number: US-PFIZER INC-2016568985

PATIENT
  Age: 64 Year
  Sex: Female

DRUGS (1)
  1. XELJANZ [Suspect]
     Active Substance: TOFACITINIB CITRATE
     Dosage: UNK

REACTIONS (6)
  - Eating disorder [Unknown]
  - Change of bowel habit [Unknown]
  - Abdominal pain upper [Unknown]
  - Diverticulum [Unknown]
  - Urinary tract infection [Unknown]
  - Contusion [Unknown]
